FAERS Safety Report 7352179-X (Version None)
Quarter: 2011Q1

REPORT INFORMATION
  Report Type: 
  Country: None (occurrence: None)
  Receive Date: 20110315
  Receipt Date: 20110311
  Transmission Date: 20110831
  Serious: Yes (Life-Threatening, Hospitalization, Other)
  Sender: FDA-Public Use
  Company Number: US-ELI_LILLY_AND_COMPANY-US201103003677

PATIENT
  Age: 50 Year
  Sex: Female

DRUGS (2)
  1. JANUMET [Concomitant]
  2. BYETTA [Suspect]
     Route: 058

REACTIONS (4)
  - PANCREATITIS [None]
  - ABDOMINAL PAIN [None]
  - PANCREATIC CYST [None]
  - PAIN [None]
